FAERS Safety Report 7592294-9 (Version None)
Quarter: 2011Q3

REPORT INFORMATION
  Report Type: 
  Country: None (occurrence: None)
  Receive Date: 20110706
  Receipt Date: 20110628
  Transmission Date: 20111222
  Serious: Yes (Other)
  Sender: FDA-Public Use
  Company Number: US-BRISTOL-MYERS SQUIBB COMPANY-15869910

PATIENT
  Sex: Female

DRUGS (1)
  1. KENALOG-40 [Suspect]
     Dosage: 1 DF:40MG/ML

REACTIONS (6)
  - MENSTRUAL DISORDER [None]
  - HYPERTENSION [None]
  - URINARY INCONTINENCE [None]
  - ERYTHEMA [None]
  - ABDOMINAL DISTENSION [None]
  - HYPERHIDROSIS [None]
